FAERS Safety Report 24680284 (Version 2)
Quarter: 2025Q1

REPORT INFORMATION
  Report Type: Spontaneous
  Country: US (occurrence: US)
  Receive Date: 20241129
  Receipt Date: 20250326
  Transmission Date: 20250408
  Serious: No
  Sender: ALEXION PHARMACEUTICALS
  Company Number: US-AstraZeneca-CH-00754294AP

PATIENT
  Age: 65 Year

DRUGS (1)
  1. BREZTRI [Suspect]
     Active Substance: BUDESONIDE\FORMOTEROL\GLYCOPYRROLATE

REACTIONS (6)
  - Product dose omission issue [Unknown]
  - Overdose [Unknown]
  - Incorrect dose administered [Unknown]
  - Laryngitis [Unknown]
  - Drug delivery system issue [Unknown]
  - Faeces hard [Unknown]
